FAERS Safety Report 8211749-7 (Version None)
Quarter: 2012Q1

REPORT INFORMATION
  Report Type: 
  Country: None (occurrence: None)
  Receive Date: 20120228
  Receipt Date: 20111011
  Transmission Date: 20120608
  Serious: Yes (Hospitalization, Disabling, Other)
  Sender: FDA-Public Use
  Company Number: RB-32786-2011

PATIENT
  Age: 30 Year
  Sex: Female

DRUGS (1)
  1. SUBOXONE [Suspect]
     Indication: PRODUCT USED FOR UNKNOWN INDICATION
     Dosage: (SUBLINGUAL)

REACTIONS (2)
  - ROAD TRAFFIC ACCIDENT [None]
  - PARALYSIS [None]
